FAERS Safety Report 9670634 (Version 2)
Quarter: 2014Q1

REPORT INFORMATION
  Report Type: Spontaneous
  Country: NL (occurrence: NL)
  Receive Date: 20131106
  Receipt Date: 20140205
  Transmission Date: 20141002
  Serious: Yes (Other)
  Sender: FDA-Public Use
  Company Number: NL-MERCK-1310NLD014793

PATIENT
  Age: 67 Year
  Sex: Male

DRUGS (3)
  1. VICTRELIS [Suspect]
     Indication: HEPATITIS C
     Dosage: 3 X 800MG A DAY
     Route: 048
     Dates: start: 2012, end: 201204
  2. PEGINTRON [Suspect]
     Indication: HEPATITIS C
     Dosage: UNK
     Route: 058
     Dates: start: 2012, end: 201204
  3. RIBAVIRIN [Suspect]
     Indication: HEPATITIS C
     Dosage: UNK
     Route: 048
     Dates: start: 2012, end: 201204

REACTIONS (3)
  - Malignant melanoma [Unknown]
  - Non-Hodgkin^s lymphoma [Recovering/Resolving]
  - Radiotherapy to lymph nodes [Recovering/Resolving]
